FAERS Safety Report 4263251-5 (Version None)
Quarter: 2004Q1

REPORT INFORMATION
  Report Type: 
  Country: None (occurrence: None)
  Receive Date: 20040104
  Receipt Date: 20040104
  Transmission Date: 20041129
  Serious: Yes (Other)
  Sender: FDA-Public Use
  Company Number: None

PATIENT
  Age: 57 Year
  Sex: Female
  Weight: 58.0604 kg

DRUGS (1)
  1. VIOXX [Suspect]
     Indication: COSTOCHONDRITIS
     Dosage: 25 MG 1/DAY ORAL
     Route: 048
     Dates: start: 20030930, end: 20031009

REACTIONS (2)
  - ASTHENIA [None]
  - ORTHOSTATIC HYPOTENSION [None]
